FAERS Safety Report 16017878 (Version 1)
Quarter: 2019Q1

REPORT INFORMATION
  Report Type: Spontaneous
  Country: US (occurrence: US)
  Receive Date: 20190228
  Receipt Date: 20190228
  Transmission Date: 20190418
  Serious: No
  Sender: FDA-Public Use
  Company Number: US-ABBVIE-19S-163-2642502-00

PATIENT
  Sex: Male

DRUGS (5)
  1. VIAGRA [Suspect]
     Active Substance: SILDENAFIL CITRATE
     Indication: ERECTILE DYSFUNCTION
     Dosage: 100MG PILL BY MOUTH 1 TABLET FOR SEX
     Route: 048
     Dates: start: 2016
  2. ACETAMINOPHEN AND CODEINE [Concomitant]
     Active Substance: ACETAMINOPHEN\CODEINE PHOSPHATE
     Indication: ARTHRITIS
     Dosage: CODEINE 4 TAKES EVERY TIME HE NEEDS IT FOR PAIN, HAS BEEN TAKING FOR A COUPLE OF YEARS.
  3. ALLOPURINOL. [Concomitant]
     Active Substance: ALLOPURINOL
     Indication: PRODUCT USED FOR UNKNOWN INDICATION
     Dosage: STARTED TAKING A COUPLE OF YEARS AGO.
  4. ANDROGEL [Suspect]
     Active Substance: TESTOSTERONE
     Indication: LABORATORY TEST ABNORMAL
     Dosage: 5GM
     Route: 061
     Dates: start: 201707
  5. BUPROPION HYDROCHLORIDE. [Concomitant]
     Active Substance: BUPROPION HYDROCHLORIDE
     Indication: NERVOUSNESS
     Dosage: 150MG TABLETS EXTENDED RELEASE
     Dates: start: 201708

REACTIONS (5)
  - Erectile dysfunction [Not Recovered/Not Resolved]
  - Drug ineffective [Not Recovered/Not Resolved]
  - Drug ineffective [Unknown]
  - Product label issue [Unknown]
  - Off label use [Unknown]

NARRATIVE: CASE EVENT DATE: 2017
